FAERS Safety Report 18077558 (Version 1)
Quarter: 2020Q3

REPORT INFORMATION
  Report Type: Report from Study
  Country: SA (occurrence: SA)
  Receive Date: 20200727
  Receipt Date: 20200727
  Transmission Date: 20201103
  Serious: Yes (Hospitalization, Disabling)
  Sender: FDA-Public Use
  Company Number: SA-B.I. PHARMACEUTICALS,INC./RIDGEFIELD-2020-BI-031174

PATIENT
  Age: 55 Year
  Sex: Female
  Weight: 79 kg

DRUGS (3)
  1. SYNJARDY [Concomitant]
     Active Substance: EMPAGLIFLOZIN\METFORMIN HYDROCHLORIDE
     Indication: DIABETES MELLITUS
     Dosage: DOSE: 10/2000
     Route: 048
     Dates: start: 20191116, end: 20200412
  2. TOVAST [Concomitant]
     Active Substance: ATORVASTATIN CALCIUM
     Indication: DYSLIPIDAEMIA
     Route: 048
     Dates: start: 20191116
  3. JARDIANCE [Suspect]
     Active Substance: EMPAGLIFLOZIN
     Indication: TYPE 2 DIABETES MELLITUS
     Route: 048
     Dates: start: 20191116

REACTIONS (3)
  - COVID-19 [Unknown]
  - Pneumonia [Recovered/Resolved]
  - Lung adenocarcinoma [Not Recovered/Not Resolved]

NARRATIVE: CASE EVENT DATE: 20200330
